FAERS Safety Report 10653919 (Version 2)
Quarter: 2015Q2

REPORT INFORMATION
  Report Type: Spontaneous
  Country: US (occurrence: US)
  Receive Date: 20141216
  Receipt Date: 20150513
  Transmission Date: 20150821
  Serious: Yes (Other)
  Sender: FDA-Public Use
  Company Number: US-ASTRAZENECA-2014SE96108

PATIENT

DRUGS (2)
  1. NEXIUM 24HR [Suspect]
     Active Substance: ESOMEPRAZOLE MAGNESIUM
     Route: 048
  2. NEXIUM [Suspect]
     Active Substance: ESOMEPRAZOLE MAGNESIUM
     Route: 048

REACTIONS (7)
  - Muscle atrophy [Unknown]
  - Dysstasia [Unknown]
  - Fall [Unknown]
  - Bedridden [Unknown]
  - Femur fracture [Unknown]
  - Ankle fracture [Unknown]
  - Osteoporosis [Unknown]
